FAERS Safety Report 8439972-7 (Version None)
Quarter: 2012Q2

REPORT INFORMATION
  Report Type: 
  Country: None (occurrence: None)
  Receive Date: 20120615
  Receipt Date: 20120612
  Transmission Date: 20120825
  Serious: Yes (Other)
  Sender: FDA-Public Use
  Company Number: BR-ABBOTT-12P-020-0945701-00

PATIENT
  Sex: Female
  Weight: 80 kg

DRUGS (9)
  1. PREGABALIN [Concomitant]
     Indication: FIBROMYALGIA
     Route: 048
     Dates: start: 20110101
  2. DULOXETINE HYDROCHLORIDE [Concomitant]
     Indication: PAIN
  3. LITHIUM CARBONATE [Concomitant]
     Indication: AFFECT LABILITY
     Route: 048
     Dates: start: 20060101
  4. PHENYTOIN [Concomitant]
     Indication: PRODUCT USED FOR UNKNOWN INDICATION
     Dates: end: 20120101
  5. HUMIRA [Suspect]
     Indication: CROHN'S DISEASE
     Route: 058
  6. DULOXETINE HYDROCHLORIDE [Concomitant]
     Indication: ANTIDEPRESSANT THERAPY
     Route: 048
     Dates: start: 20110101
  7. PREGABALIN [Concomitant]
     Indication: PAIN
  8. CLONAZEPAM [Concomitant]
     Indication: RELAXATION THERAPY
     Route: 048
     Dates: start: 20060101
  9. CLOMIPRAMINE HCL [Concomitant]
     Indication: ANTIDEPRESSANT THERAPY
     Route: 048
     Dates: start: 20100101

REACTIONS (3)
  - MALAISE [None]
  - CONVULSION [None]
  - SYNCOPE [None]
